FAERS Safety Report 17127504 (Version 2)
Quarter: 2020Q1

REPORT INFORMATION
  Report Type: Spontaneous
  Country: BR (occurrence: BR)
  Receive Date: 20191209
  Receipt Date: 20200325
  Transmission Date: 20200409
  Serious: No
  Sender: FDA-Public Use
  Company Number: BR-GLAXOSMITHKLINE-BR2019AMR136108

PATIENT
  Sex: Female
  Weight: 115 kg

DRUGS (2)
  1. BENLYSTA [Suspect]
     Active Substance: BELIMUMAB
     Indication: SYSTEMIC LUPUS ERYTHEMATOSUS
     Dosage: 760 MG
     Dates: start: 20190715
  2. AZITHROMYCIN ANHYDROUS. [Suspect]
     Active Substance: AZITHROMYCIN ANHYDROUS
     Indication: OROPHARYNGEAL DISCOMFORT
     Dosage: UNK

REACTIONS (18)
  - Pustule [Not Recovered/Not Resolved]
  - Drug ineffective [Not Recovered/Not Resolved]
  - Pharyngeal inflammation [Unknown]
  - Breast swelling [Unknown]
  - Wound [Not Recovered/Not Resolved]
  - Oropharyngeal discomfort [Not Recovered/Not Resolved]
  - Breast discolouration [Unknown]
  - Back pain [Unknown]
  - Breast pain [Unknown]
  - Erythema [Unknown]
  - Inflammation [Not Recovered/Not Resolved]
  - Candida infection [Unknown]
  - Inappropriate schedule of product administration [Not Recovered/Not Resolved]
  - Pyrexia [Not Recovered/Not Resolved]
  - Pain [Not Recovered/Not Resolved]
  - Breast discharge [Unknown]
  - Breast inflammation [Unknown]
  - Throat lesion [Not Recovered/Not Resolved]
